FAERS Safety Report 13037212 (Version 1)
Quarter: 2016Q4

REPORT INFORMATION
  Report Type: Spontaneous
  Country: US (occurrence: US)
  Receive Date: 20161216
  Receipt Date: 20161216
  Transmission Date: 20170207
  Serious: Yes (Other)
  Sender: FDA-Public Use
  Company Number: US-ELI_LILLY_AND_COMPANY-US201612003581

PATIENT
  Sex: Female

DRUGS (2)
  1. FORTEO [Suspect]
     Active Substance: TERIPARATIDE
     Indication: OSTEOPOROSIS
     Dosage: 1 DF, QD
     Route: 065
     Dates: start: 201502
  2. FORTEO [Suspect]
     Active Substance: TERIPARATIDE
     Dosage: 1 DF, QD
     Route: 065

REACTIONS (2)
  - Intervertebral disc protrusion [Unknown]
  - Drug dose omission [Unknown]
